FAERS Safety Report 8242510-5 (Version None)
Quarter: 2012Q1

REPORT INFORMATION
  Report Type: 
  Country: None (occurrence: None)
  Receive Date: 20120329
  Receipt Date: 20120322
  Transmission Date: 20120608
  Serious: Yes (Other)
  Sender: FDA-Public Use
  Company Number: GB-ACCORD-012825

PATIENT
  Age: 67 Year
  Sex: Male
  Weight: 73 kg

DRUGS (5)
  1. GAVISCON [Concomitant]
     Indication: DYSPEPSIA
     Route: 065
     Dates: start: 20071230
  2. PERINDOPRIL [Concomitant]
     Indication: HYPERTENSION
     Route: 065
     Dates: start: 20091009
  3. LANSOPRAZOLE [Concomitant]
     Indication: DYSPEPSIA
     Route: 065
     Dates: start: 20090508
  4. NORTRIPTYLINE HCL [Concomitant]
     Indication: IRRITABLE BOWEL SYNDROME
     Route: 065
     Dates: start: 20110311
  5. SIMVASTATIN [Suspect]
     Route: 048
     Dates: start: 20060101

REACTIONS (1)
  - APHASIA [None]
